FAERS Safety Report 8660285 (Version 4)
Quarter: 2012Q4

REPORT INFORMATION
  Report Type: 
  Country: US (occurrence: US)
  Receive Date: 20120711
  Receipt Date: 20121219
  Transmission Date: 20130627
  Serious: Yes (Other)
  Sender: FDA-Public Use
  Company Number: US-GILEAD-2012-0057563

PATIENT
  Sex: Female

DRUGS (1)
  1. LETAIRIS [Suspect]
     Indication: PULMONARY HYPERTENSION
     Dosage: 5 mg, QD
     Route: 048
     Dates: start: 20120201

REACTIONS (5)
  - Brain neoplasm [Unknown]
  - Convulsion [Unknown]
  - Syncope [Unknown]
  - Chest pain [Unknown]
  - Liver disorder [Unknown]
